FAERS Safety Report 7592529-2 (Version None)
Quarter: 2011Q3

REPORT INFORMATION
  Report Type: 
  Country: None (occurrence: None)
  Receive Date: 20110706
  Receipt Date: 20110623
  Transmission Date: 20111222
  Serious: Yes (Other)
  Sender: FDA-Public Use
  Company Number: GB-ELI_LILLY_AND_COMPANY-GB201106006953

PATIENT
  Sex: Female

DRUGS (1)
  1. CYMBALTA [Suspect]
     Dosage: UNK, UNKNOWN

REACTIONS (4)
  - LIP AND/OR ORAL CAVITY CANCER [None]
  - HEAD DISCOMFORT [None]
  - DYSPHAGIA [None]
  - MUSCULOSKELETAL DISCOMFORT [None]
